FAERS Safety Report 24346863 (Version 1)
Quarter: 2024Q3

REPORT INFORMATION
  Report Type: Spontaneous
  Country: FR (occurrence: FR)
  Receive Date: 20240921
  Receipt Date: 20240921
  Transmission Date: 20241016
  Serious: Yes (Other)
  Sender: AUROBINDO
  Company Number: FR-AFSSAPS-AN2024001221

PATIENT
  Age: 63 Year
  Sex: Male
  Weight: 74 kg

DRUGS (4)
  1. FUROSEMIDE [Suspect]
     Active Substance: FUROSEMIDE
     Indication: Transfusion
     Dosage: 40 MILLIGRAM
     Route: 042
     Dates: start: 20240616, end: 20240621
  2. NEFOPAM [Suspect]
     Active Substance: NEFOPAM
     Indication: Pain
     Dosage: 20 MILLIGRAM, EVERY FOUR HOUR
     Route: 042
     Dates: start: 20240615, end: 20240620
  3. MORPHINE SULFATE [Suspect]
     Active Substance: MORPHINE SULFATE
     Indication: Pain
     Dosage: 0.5 MILLIGRAM, EVERY HOUR (MORPHINE (SULFATE) RENAUDIN )
     Route: 051
     Dates: start: 20240611, end: 20240619
  4. CYTARABINE [Suspect]
     Active Substance: CYTARABINE
     Indication: Acute myeloid leukaemia
     Dosage: 82 MILLIGRAM
     Route: 042
     Dates: start: 20240613, end: 20240620

REACTIONS (1)
  - Hepatic cytolysis [Recovered/Resolved]

NARRATIVE: CASE EVENT DATE: 20240620
